FAERS Safety Report 9925533 (Version 1)
Quarter: 2014Q1

REPORT INFORMATION
  Report Type: Spontaneous
  Country: US (occurrence: None)
  Receive Date: 20140225
  Receipt Date: 20140225
  Transmission Date: 20141002
  Serious: Yes (Life-Threatening, Hospitalization, Other)
  Sender: FDA-Public Use
  Company Number: None

PATIENT
  Age: 66 Year
  Sex: Female
  Weight: 56 kg

DRUGS (1)
  1. PRADAXA 150 MG BOCHRINGER INGELHIEM [Suspect]
     Route: 048
     Dates: start: 20121010

REACTIONS (2)
  - Product quality issue [None]
  - Cerebrovascular accident [None]
